FAERS Safety Report 7626549-6 (Version None)
Quarter: 2011Q3

REPORT INFORMATION
  Report Type: 
  Country: None (occurrence: None)
  Receive Date: 20110721
  Receipt Date: 20110715
  Transmission Date: 20111222
  Serious: Yes (Other)
  Sender: FDA-Public Use
  Company Number: US-GLAXOSMITHKLINE-A0936965A

PATIENT
  Age: 22 Year
  Sex: Male

DRUGS (3)
  1. LOVAZA [Suspect]
     Indication: BLOOD TRIGLYCERIDES INCREASED
  2. BUSPAR [Concomitant]
  3. NITRAZEPAM [Concomitant]

REACTIONS (1)
  - HAEMATOCHEZIA [None]
